FAERS Safety Report 23890811 (Version 1)
Quarter: 2024Q2

REPORT INFORMATION
  Report Type: Spontaneous
  Country: US (occurrence: US)
  Receive Date: 20240523
  Receipt Date: 20240523
  Transmission Date: 20240715
  Serious: No
  Sender: FDA-Public Use
  Company Number: US-BAYER-2024A075743

PATIENT
  Sex: Female

DRUGS (1)
  1. MIRALAX [Suspect]
     Active Substance: POLYETHYLENE GLYCOL 3350
     Indication: Gastrointestinal disorder
     Dosage: UNK UNK, OM
     Route: 048
     Dates: start: 202312

REACTIONS (2)
  - Diarrhoea [Not Recovered/Not Resolved]
  - Incorrect product administration duration [None]

NARRATIVE: CASE EVENT DATE: 20231201
